FAERS Safety Report 9734330 (Version 1)
Quarter: 2013Q4

REPORT INFORMATION
  Report Type: Spontaneous
  Country: AU (occurrence: AU)
  Receive Date: 20131206
  Receipt Date: 20131206
  Transmission Date: 20140711
  Serious: No
  Sender: FDA-Public Use
  Company Number: AU-B.I. PHARMACEUTICALS,INC./RIDGEFIELD-2013-BI-39037AU

PATIENT
  Age: 66 Year
  Sex: Male

DRUGS (1)
  1. MICARDIS [Suspect]
     Indication: BLOOD PRESSURE INCREASED
     Dates: start: 201212

REACTIONS (1)
  - Neuropathy peripheral [Unknown]
